FAERS Safety Report 16216766 (Version 4)
Quarter: 2019Q3

REPORT INFORMATION
  Report Type: Report from Study
  Country: GB (occurrence: GB)
  Receive Date: 20190419
  Receipt Date: 20190719
  Transmission Date: 20191004
  Serious: Yes (Other)
  Sender: FDA-Public Use
  Company Number: PHHY2019GB067807

PATIENT
  Age: 64 Year
  Sex: Male

DRUGS (1)
  1. SANDOSTATIN LAR DEPOT [Suspect]
     Active Substance: OCTREOTIDE ACETATE
     Indication: NEUROENDOCRINE TUMOUR
     Dosage: 30 MG, Q3W
     Route: 030
     Dates: start: 201805

REACTIONS (11)
  - Headache [Unknown]
  - Lower respiratory tract infection [Unknown]
  - Flatulence [Unknown]
  - Inappropriate schedule of product administration [Unknown]
  - Groin pain [Unknown]
  - Metastases to bone [Unknown]
  - Flushing [Unknown]
  - Neoplasm [Unknown]
  - Nausea [Unknown]
  - Pain in extremity [Unknown]
  - Head discomfort [Unknown]

NARRATIVE: CASE EVENT DATE: 20190419
